FAERS Safety Report 16623007 (Version 1)
Quarter: 2019Q3

REPORT INFORMATION
  Report Type: Report from Study
  Country: KR (occurrence: KR)
  Receive Date: 20190724
  Receipt Date: 20190724
  Transmission Date: 20191004
  Serious: Yes (Death)
  Sender: FDA-Public Use
  Company Number: KR-CELLTRION INC.-2019KR023061

PATIENT

DRUGS (3)
  1. TRILEPTAL [Concomitant]
     Active Substance: OXCARBAZEPINE
     Indication: BRAIN NEOPLASM
     Dosage: 300 MG, BID
     Route: 048
     Dates: start: 1976, end: 20190616
  2. TRUXIMA [Suspect]
     Active Substance: RITUXIMAB-ABBS
     Indication: DIFFUSE LARGE B-CELL LYMPHOMA
     Dosage: 600 MG, EVERY 3 WEEKS
     Route: 042
     Dates: start: 20190109, end: 20190410
  3. RIVOTRIL [Concomitant]
     Active Substance: CLONAZEPAM
     Indication: BRAIN NEOPLASM
     Dosage: 0.5 MG, TID
     Route: 048
     Dates: start: 1976, end: 20190616

REACTIONS (1)
  - Pneumonia [Fatal]

NARRATIVE: CASE EVENT DATE: 20190609
